FAERS Safety Report 10467811 (Version 3)
Quarter: 2014Q4

REPORT INFORMATION
  Report Type: Spontaneous
  Country: US (occurrence: US)
  Receive Date: 20140922
  Receipt Date: 20141127
  Transmission Date: 20150528
  Serious: Yes (Other)
  Sender: FDA-Public Use
  Company Number: US-AMGEN-USASP2014071244

PATIENT
  Age: 63 Year
  Sex: Female
  Weight: 85.71 kg

DRUGS (7)
  1. TRAMADOL [Concomitant]
     Active Substance: TRAMADOL
     Dosage: 50 MG, AS NECESSARY
  2. PROZAC [Concomitant]
     Active Substance: FLUOXETINE HYDROCHLORIDE
     Dosage: 20 MG, QD
     Route: 048
  3. VIMOVO [Concomitant]
     Active Substance: ESOMEPRAZOLE MAGNESIUM\NAPROXEN
     Dosage: 500 MG, BID
  4. LYRICA [Concomitant]
     Active Substance: PREGABALIN
     Indication: FIBROMYALGIA
     Dosage: 75 MG, 1 IN AM AND 2 IN PM
  5. PROLIA [Suspect]
     Active Substance: DENOSUMAB
     Indication: OSTEOPOROSIS POSTMENOPAUSAL
     Dosage: 60 MG/ML, Q6MO
     Route: 058
  6. CALCIUM [Concomitant]
     Active Substance: CALCIUM
     Dosage: 600 MG, QWK
  7. VITAMIN D                          /00107901/ [Concomitant]
     Active Substance: ERGOCALCIFEROL
     Dosage: 400 IU, BID

REACTIONS (11)
  - Knee arthroplasty [Unknown]
  - Hyperparathyroidism primary [Unknown]
  - Restless legs syndrome [Unknown]
  - Aphthous stomatitis [Unknown]
  - Urinary tract infection [Unknown]
  - Thyroid neoplasm [Unknown]
  - Nephrolithiasis [Unknown]
  - Tooth disorder [Unknown]
  - Rheumatic disorder [Unknown]
  - Fibromyalgia [Unknown]
  - Depression [Recovering/Resolving]

NARRATIVE: CASE EVENT DATE: 201402
